FAERS Safety Report 8198486-2 (Version None)
Quarter: 2012Q1

REPORT INFORMATION
  Report Type: 
  Country: None (occurrence: None)
  Receive Date: 20120227
  Receipt Date: 20120119
  Transmission Date: 20120608
  Serious: Yes (Hospitalization)
  Sender: FDA-Public Use
  Company Number: 343438

PATIENT
  Age: 67 Year
  Sex: Male
  Weight: 104.3 kg

DRUGS (5)
  1. AMLODIPINE [Concomitant]
  2. ACTOS [Concomitant]
  3. NIASPAN [Concomitant]
  4. VICTOZA [Suspect]
     Indication: DIABETES MELLITUS
     Dosage: SUBCUTANEOUS
     Route: 058
     Dates: start: 20100101, end: 20100101
  5. COREG [Concomitant]

REACTIONS (1)
  - BLOOD GLUCOSE INCREASED [None]
